FAERS Safety Report 14374149 (Version 3)
Quarter: 2018Q2

REPORT INFORMATION
  Report Type: Report from Study
  Country: US (occurrence: US)
  Receive Date: 20180111
  Receipt Date: 20180421
  Transmission Date: 20180711
  Serious: Yes (Hospitalization, Other)
  Sender: FDA-Public Use
  Company Number: PHEH2018US000970

PATIENT
  Sex: Female

DRUGS (2)
  1. ENTRESTO [Suspect]
     Active Substance: SACUBITRIL\VALSARTAN
     Dosage: 1 DF (49MG SACUBITRIL/ 51MG VALSARTAN), UNK
     Route: 048
  2. ENTRESTO [Suspect]
     Active Substance: SACUBITRIL\VALSARTAN
     Indication: PRODUCT USED FOR UNKNOWN INDICATION
     Dosage: 1 DF (24MG SACUBITRIL/ 26MG VALSARTAN), UNK
     Route: 048

REACTIONS (5)
  - Pain in extremity [Unknown]
  - Limb discomfort [Unknown]
  - Fatigue [Recovered/Resolved]
  - Blood pressure decreased [Unknown]
  - Dizziness [Recovered/Resolved]
